FAERS Safety Report 7409508 (Version 4)
Quarter: 2012Q4

REPORT INFORMATION
  Report Type: Report from Study
  Country: FR (occurrence: FR)
  Receive Date: 20100604
  Receipt Date: 20121123
  Transmission Date: 20130627
  Serious: Yes (Hospitalization)
  Sender: FDA-Public Use
  Company Number: FR-PFIZER INC-2010065960

PATIENT
  Age: 74 Year
  Sex: Male
  Weight: 88 kg

DRUGS (17)
  1. SUTENT [Suspect]
     Dosage: 50 mg, 1x/day
     Route: 048
     Dates: start: 20100409, end: 20100430
  2. SUTENT [Suspect]
     Dosage: 25 mg, 1x/day
     Route: 048
     Dates: start: 20100607, end: 20100704
  3. SUTENT [Suspect]
     Dosage: 25 mg, 1x/day
     Route: 048
     Dates: start: 20100719, end: 20100815
  4. SUTENT [Suspect]
     Dosage: 25 mg, 1x/day
     Route: 048
     Dates: start: 20100830, end: 20100926
  5. SUTENT [Suspect]
     Dosage: 25 mg, 1x/day
     Route: 048
     Dates: start: 20101018, end: 20101112
  6. AMLOR [Concomitant]
     Dosage: 1 mg, 2x/day (morning and evening)
  7. TAHOR [Concomitant]
     Dosage: 40 mg, 1x/day
  8. APROVEL [Concomitant]
     Dosage: 300 mg, 1x/day
  9. ADANCOR [Concomitant]
     Dosage: 10 mg, 2x/day
  10. BISOPROLOL [Concomitant]
     Dosage: 10 mg, 1x/day
  11. PLAVIX [Concomitant]
     Dosage: 75 mg, 1x/day
  12. TARDYFERON [Concomitant]
     Dosage: 1 DF, 1x/day
  13. DIFFU K [Concomitant]
     Dosage: 1 DF, 3x/day
  14. NOVONORM [Concomitant]
     Dosage: 4 mg, 2x/day (morning and evening)
  15. LASILIX [Concomitant]
     Dosage: 80 mg, 1x/day in the evening
  16. LANTUS [Concomitant]
  17. ALFACALCIDOL [Concomitant]
     Dosage: 0.5 mg, 1x/day

REACTIONS (2)
  - Asthenia [Recovered/Resolved]
  - Altered state of consciousness [Recovered/Resolved]
